FAERS Safety Report 13047983 (Version 1)
Quarter: 2016Q4

REPORT INFORMATION
  Report Type: Spontaneous
  Country: US (occurrence: US)
  Receive Date: 20161220
  Receipt Date: 20161220
  Transmission Date: 20170207
  Serious: No
  Sender: FDA-Public Use
  Company Number: None

PATIENT
  Age: 74 Year
  Sex: Female

DRUGS (1)
  1. REPATHA [Suspect]
     Active Substance: EVOLOCUMAB
     Indication: TYPE V HYPERLIPIDAEMIA

REACTIONS (6)
  - Dehydration [None]
  - Malaise [None]
  - Nausea [None]
  - Nervousness [None]
  - Tremor [None]
  - Headache [None]

NARRATIVE: CASE EVENT DATE: 20161215
